FAERS Safety Report 23150927 (Version 1)
Quarter: 2023Q4

REPORT INFORMATION
  Report Type: Spontaneous
  Country: GT (occurrence: GT)
  Receive Date: 20231106
  Receipt Date: 20231106
  Transmission Date: 20240109
  Serious: Yes (Other)
  Sender: FDA-Public Use
  Company Number: GT-BAYER-2023A121755

PATIENT
  Sex: Male

DRUGS (2)
  1. FINERENONE [Suspect]
     Active Substance: FINERENONE
     Indication: Nephropathy
     Dosage: 10 MG
  2. FINERENONE [Suspect]
     Active Substance: FINERENONE
     Indication: Type 1 diabetes mellitus

REACTIONS (2)
  - Prostatic operation [None]
  - Off label use [Unknown]
